FAERS Safety Report 17419813 (Version 1)
Quarter: 2020Q1

REPORT INFORMATION
  Report Type: Spontaneous
  Country: ES (occurrence: ES)
  Receive Date: 20200214
  Receipt Date: 20200214
  Transmission Date: 20200409
  Serious: Yes (Death)
  Sender: FDA-Public Use
  Company Number: ES-PFIZER INC-2020064470

PATIENT
  Sex: Male

DRUGS (1)
  1. CYTOTEC [Suspect]
     Active Substance: MISOPROSTOL
     Indication: ABORTION
     Dosage: 1200 MG, SINGLE
     Route: 064
     Dates: start: 20191029, end: 20191030

REACTIONS (3)
  - Foetal exposure during pregnancy [Fatal]
  - Heart disease congenital [Fatal]
  - Renal aplasia [Fatal]

NARRATIVE: CASE EVENT DATE: 20191029
